FAERS Safety Report 8533937-2 (Version None)
Quarter: 2012Q3

REPORT INFORMATION
  Report Type: 
  Country: None (occurrence: None)
  Receive Date: 20120712
  Receipt Date: 20120627
  Transmission Date: 20120928
  Serious: Yes (Congenital Anomaly)
  Sender: FDA-Public Use
  Company Number: ADR-UNK-058

PATIENT
  Age: 1 Day
  Sex: Female
  Weight: 2.3 kg

DRUGS (6)
  1. LOPINAVIR+RITONAVIR (KALETRA, ALUVIA, LPV/R) [Concomitant]
  2. DIDANOSIS (VIDEX, VIDEX EC, DDI) [Concomitant]
  3. LAMIVUDINE [Suspect]
     Indication: ACQUIRED IMMUNODEFICIENCY SYNDROME
     Dosage: 1 COURSE 300 MG/DAY ORAL
     Route: 048
     Dates: start: 20021025
  4. INDINAVIR (CRIXIVAN, IDV) [Concomitant]
  5. ZIDOVUDINE GENERIC-AUROBINDO [Concomitant]
  6. NORVIR [Concomitant]

REACTIONS (3)
  - MATERNAL DRUGS AFFECTING FOETUS [None]
  - POLYDACTYLY [None]
  - CLEFT LIP [None]
